FAERS Safety Report 6569891-2 (Version None)
Quarter: 2010Q1

REPORT INFORMATION
  Report Type: 
  Country: None (occurrence: None)
  Receive Date: 20100204
  Receipt Date: 20100126
  Transmission Date: 20100710
  Serious: Yes (Hospitalization, Other)
  Sender: FDA-Public Use
  Company Number: PHHY2010BR02249

PATIENT
  Age: 55 Year
  Sex: Female

DRUGS (5)
  1. ACLASTA [Suspect]
     Indication: OSTEOPOROSIS
     Dosage: 5 MG/100ML ANNUALLY
     Route: 042
     Dates: start: 20091101
  2. VITAMIN B-12 [Concomitant]
     Dosage: 1 APPLICATION EVERY 2 MONTHS
  3. LEVOTIROXINA [Concomitant]
     Dosage: UNK
  4. CALCIO 20 [Concomitant]
  5. VITAMIN D [Concomitant]

REACTIONS (9)
  - ERYTHEMA [None]
  - GAIT DISTURBANCE [None]
  - INFECTION [None]
  - LEUKOCYTOSIS [None]
  - PAIN [None]
  - PAIN IN EXTREMITY [None]
  - PARAESTHESIA [None]
  - PNEUMONIA [None]
  - PYREXIA [None]
